FAERS Safety Report 10250962 (Version 1)
Quarter: 2014Q2

REPORT INFORMATION
  Report Type: Spontaneous
  Country: US (occurrence: US)
  Receive Date: 20140620
  Receipt Date: 20140620
  Transmission Date: 20141212
  Serious: Yes (Hospitalization, Other)
  Sender: FDA-Public Use
  Company Number: US-BAYER-2014-090132

PATIENT
  Age: 27 Year
  Sex: Female

DRUGS (5)
  1. NAPROXEN SODIUM ({= 220 MG) [Suspect]
     Dosage: UNK, ONCE
     Route: 048
  2. IBUPROFEN [Suspect]
     Dosage: UNK UNK, ONCE
     Route: 048
  3. WARFARIN [Suspect]
     Dosage: 60 DF, ONCE
     Route: 048
  4. OXYCODONE W/PARACETAMOL [Suspect]
     Dosage: UNK UNK, ONCE
     Route: 048
  5. NORTRIPTYLINE [Suspect]

REACTIONS (4)
  - Suicide attempt [None]
  - Intentional product misuse [None]
  - Labelled drug-drug interaction medication error [None]
  - International normalised ratio increased [Recovered/Resolved]
